FAERS Safety Report 14508578 (Version 3)
Quarter: 2018Q1

REPORT INFORMATION
  Report Type: Report from Study
  Country: None (occurrence: CA)
  Receive Date: 20180209
  Receipt Date: 20180309
  Transmission Date: 20180509
  Serious: Yes (Other)
  Sender: FDA-Public Use
  Company Number: CA-ABBVIE-18K-028-2247783-00

PATIENT
  Age: 54 Year
  Sex: Female

DRUGS (2)
  1. HUMIRA [Suspect]
     Active Substance: ADALIMUMAB
     Indication: RHEUMATOID ARTHRITIS
     Route: 058
     Dates: start: 20171218, end: 20171218
  2. HUMIRA [Suspect]
     Active Substance: ADALIMUMAB
     Route: 058
     Dates: start: 20180215, end: 20180215

REACTIONS (4)
  - Loose body in joint [Not Recovered/Not Resolved]
  - Influenza [Recovering/Resolving]
  - Postoperative wound infection [Not Recovered/Not Resolved]
  - Incision site swelling [Unknown]

NARRATIVE: CASE EVENT DATE: 201712
